FAERS Safety Report 21005308 (Version 3)
Quarter: 2023Q1

REPORT INFORMATION
  Report Type: Other
  Country: US (occurrence: None)
  Receive Date: 20220624
  Receipt Date: 20230112
  Transmission Date: 20230417
  Serious: Yes (Hospitalization, Other)
  Sender: FDA-Public Use
  Company Number: US-ROCHE-3118389

PATIENT
  Age: 59 Year
  Sex: Female
  Weight: 68.554 kg

DRUGS (7)
  1. OCREVUS [Suspect]
     Active Substance: OCRELIZUMAB
     Indication: Relapsing-remitting multiple sclerosis
     Dosage: THEN 600 MG ONCE IN 6 MONTHS (09/JAN/2022)
     Route: 042
     Dates: start: 2021
  2. OXYGEN [Concomitant]
     Active Substance: OXYGEN
  3. AVONEX [Concomitant]
     Active Substance: INTERFERON BETA-1A
  4. BACLOFEN [Concomitant]
     Active Substance: BACLOFEN
  5. DICLOFENAC [Concomitant]
     Active Substance: DICLOFENAC
  6. LORAZEPAM [Concomitant]
     Active Substance: LORAZEPAM
  7. TRAMADOL [Concomitant]
     Active Substance: TRAMADOL

REACTIONS (8)
  - COVID-19 pneumonia [Recovered/Resolved]
  - Gait inability [Not Recovered/Not Resolved]
  - Cerebrovascular accident [Recovering/Resolving]
  - Off label use [Unknown]
  - Sepsis [Recovered/Resolved]
  - Pneumothorax [Recovered/Resolved]
  - Peripheral swelling [Recovered/Resolved]
  - Dysarthria [Not Recovered/Not Resolved]

NARRATIVE: CASE EVENT DATE: 20211201
